FAERS Safety Report 4334153-0 (Version None)
Quarter: 2004Q2

REPORT INFORMATION
  Report Type: 
  Country: None (occurrence: None)
  Receive Date: 20040405
  Receipt Date: 20040323
  Transmission Date: 20050107
  Serious: Yes (Other)
  Sender: FDA-Public Use
  Company Number: 2004019811

PATIENT
  Age: 85 Year
  Sex: Male
  Weight: 67.586 kg

DRUGS (13)
  1. BENADRYL [Suspect]
     Indication: HYPERSENSITIVITY
     Dosage: 1 TAB PRN THEN 1 TAB QD, ORAL
     Route: 048
     Dates: start: 19950101
  2. ALLOPURINOL [Concomitant]
  3. FUROSEMIDE [Concomitant]
  4. LISINOPRIL [Concomitant]
  5. ATENOLOL [Concomitant]
  6. SIMVASTATIN [Concomitant]
  7. PANTOPRAZOLE (PANTOPRAZOLE) [Concomitant]
  8. SPIRONOLACTONE [Concomitant]
  9. CLOPIDOGREL BISULFATE [Concomitant]
  10. PREDNISONE [Concomitant]
  11. LEVOTHYROXINE SODIUM [Concomitant]
  12. ACETYLSALICYLIC ACID SRT [Concomitant]
  13. ZINC (ZINC) [Concomitant]

REACTIONS (3)
  - HYPERSENSITIVITY [None]
  - INSOMNIA [None]
  - RENAL FAILURE [None]
